FAERS Safety Report 21265291 (Version 1)
Quarter: 2022Q3

REPORT INFORMATION
  Report Type: Spontaneous
  Country: US (occurrence: US)
  Receive Date: 20220829
  Receipt Date: 20220829
  Transmission Date: 20221027
  Serious: No
  Sender: FDA-Public Use
  Company Number: US-BAUSCH-BL-2022-020726

PATIENT

DRUGS (2)
  1. MESALAMINE [Suspect]
     Active Substance: MESALAMINE
     Indication: Crohn^s disease
     Dosage: 2 800MG 3 TIMES A DAY
     Route: 065
     Dates: start: 2009
  2. MESALAMINE [Suspect]
     Active Substance: MESALAMINE
     Indication: Product use in unapproved indication
     Dosage: RIGHT AWAY PATIENT STARTED TO WEAN OFF OF IT
     Route: 065

REACTIONS (7)
  - Anxiety [Recovering/Resolving]
  - Back pain [Recovering/Resolving]
  - Muscle spasms [Recovering/Resolving]
  - Headache [Recovering/Resolving]
  - Product use in unapproved indication [Unknown]
  - Inappropriate schedule of product administration [Unknown]
  - Drug effective for unapproved indication [Unknown]

NARRATIVE: CASE EVENT DATE: 20090101
